FAERS Safety Report 22347718 (Version 1)
Quarter: 2023Q2

REPORT INFORMATION
  Report Type: Spontaneous
  Country: JP (occurrence: JP)
  Receive Date: 20230522
  Receipt Date: 20230522
  Transmission Date: 20230721
  Serious: Yes (Hospitalization)
  Sender: FDA-Public Use
  Company Number: JP-BRISTOL-MYERS SQUIBB COMPANY-2022-129538

PATIENT
  Age: 7 Decade
  Sex: Female

DRUGS (2)
  1. YERVOY [Suspect]
     Active Substance: IPILIMUMAB
     Indication: Oesophageal carcinoma
     Route: 041
     Dates: start: 20220628, end: 20230106
  2. OPDIVO [Suspect]
     Active Substance: NIVOLUMAB
     Indication: Oesophageal carcinoma
     Route: 041
     Dates: start: 20220628, end: 20230203

REACTIONS (1)
  - Hypopituitarism [Not Recovered/Not Resolved]

NARRATIVE: CASE EVENT DATE: 20221021
